FAERS Safety Report 5370429-6 (Version None)
Quarter: 2007Q2

REPORT INFORMATION
  Report Type: 
  Country: None (occurrence: None)
  Receive Date: 20070625
  Receipt Date: 20070625
  Transmission Date: 20071010
  Serious: Yes (Hospitalization)
  Sender: FDA-Public Use
  Company Number: None

PATIENT
  Sex: Male
  Weight: 20.2 kg

DRUGS (10)
  1. CYTARABINE [Suspect]
     Dosage: 30048 MG
  2. PEG-L- ASPARAGINASE (K-H) [Suspect]
     Dosage: 6250 UNIT
  3. CYCLOPHOSPHAMIDE [Suspect]
     Dosage: 850 MG
  4. ETOPOSIDE [Suspect]
     Dosage: 510 MG
  5. G-CSF (FILGRASTIM, AMGEN) [Suspect]
     Dosage: 2500 MG
  6. HYDROCORTISONE [Suspect]
     Dosage: 24 MG
  7. LEUCOVORIN CALCIUM [Suspect]
     Dosage: 78 MG
  8. MERCAPTOPURINE [Suspect]
     Dosage: 225 MG
  9. MESNA [Suspect]
     Dosage: 170 MG
  10. METHOTREXATE [Suspect]
     Dosage: 8475 MG

REACTIONS (19)
  - BLOOD ALBUMIN DECREASED [None]
  - BLOOD POTASSIUM INCREASED [None]
  - BLOOD PRESSURE DECREASED [None]
  - BRADYCARDIA [None]
  - CARDIAC ARREST [None]
  - ESCHERICHIA INFECTION [None]
  - HAEMATOCRIT DECREASED [None]
  - HAEMOGLOBIN DECREASED [None]
  - LUNG INFILTRATION [None]
  - NEUTROPENIA [None]
  - NO THERAPEUTIC RESPONSE [None]
  - PLATELET COUNT DECREASED [None]
  - PULMONARY HAEMORRHAGE [None]
  - PYREXIA [None]
  - REFUSAL OF TREATMENT BY RELATIVE [None]
  - SKIN GRAFT [None]
  - VOMITING [None]
  - WHITE BLOOD CELL COUNT DECREASED [None]
  - WOUND ABSCESS [None]
